FAERS Safety Report 12546637 (Version 1)
Quarter: 2016Q3

REPORT INFORMATION
  Report Type: Spontaneous
  Country: GB (occurrence: GB)
  Receive Date: 20160711
  Receipt Date: 20160711
  Transmission Date: 20161109
  Serious: Yes (Other)
  Sender: FDA-Public Use
  Company Number: GB-B. BRAUN MEDICAL INC.-1054878

PATIENT
  Age: 34 Year
  Sex: Female
  Weight: 59 kg

DRUGS (5)
  1. METRONIDAZOLE. [Suspect]
     Active Substance: METRONIDAZOLE
     Dates: start: 20160613
  2. PHENOXYMETHYLPENICILLIN [Concomitant]
     Active Substance: PENICILLIN V
     Dates: start: 20160608
  3. CAPASAL [Concomitant]
     Route: 061
     Dates: start: 20160531
  4. VALACICLOVIR [Concomitant]
     Active Substance: VALACYCLOVIR HYDROCHLORIDE
     Route: 048
     Dates: start: 20160509, end: 20160516
  5. DESOGESTREL [Concomitant]
     Active Substance: DESOGESTREL
     Dates: start: 20160329, end: 20160426

REACTIONS (3)
  - Rash [None]
  - Pain [None]
  - Peripheral swelling [None]
